FAERS Safety Report 10965339 (Version 5)
Quarter: 2016Q2

REPORT INFORMATION
  Report Type: Spontaneous
  Country: US (occurrence: US)
  Receive Date: 20150330
  Receipt Date: 20160519
  Transmission Date: 20160815
  Serious: No
  Sender: FDA-Public Use
  Company Number: US-PFIZER INC-2015108966

PATIENT
  Age: 54 Year
  Sex: Male

DRUGS (22)
  1. FLEXERIL [Concomitant]
     Active Substance: CYCLOBENZAPRINE HYDROCHLORIDE
     Dosage: 10 MG TABLET, TAKE 1 OR 2 TABLETS BY MOUTH IF NEEDED
     Route: 048
     Dates: start: 20160418
  2. FEVERFEW [Concomitant]
     Active Substance: FEVERFEW
     Dosage: 500 MG, DAILY
     Route: 048
  3. MAG-OX [Concomitant]
     Active Substance: MAGNESIUM OXIDE
     Dosage: 800 MG, BY MOUTH NIGHTLY
     Route: 048
  4. GLUCOPHAGE XR [Concomitant]
     Active Substance: METFORMIN HYDROCHLORIDE
     Dosage: 500 MG, 2X/DAY(1 TABLET BY MOUTH 2 (TWO) TIMES DAILY WITH MEALS)
     Route: 048
     Dates: start: 20160324
  5. VITAMIN D2 [Concomitant]
     Active Substance: ERGOCALCIFEROL
     Dosage: 50000 IU, WEEKLY (ONCE A WEEK FOR 6 WEEKS, THEN TAKE ONE CAPSULE ONCE A MONTH)
     Route: 048
     Dates: start: 20150415
  6. CLEOCIN [Concomitant]
     Active Substance: CLINDAMYCIN PHOSPHATE
     Dosage: 300 MG, 3X/DAY
     Route: 048
  7. LYRICA [Suspect]
     Active Substance: PREGABALIN
     Indication: FIBROMYALGIA
     Dosage: 100 MG, 3X/DAY
     Dates: start: 20150908
  8. SYNTHROID [Concomitant]
     Active Substance: LEVOTHYROXINE SODIUM
     Dosage: 125 ?G, DAILY
     Route: 048
     Dates: start: 20150727
  9. LYRICA [Suspect]
     Active Substance: PREGABALIN
     Dosage: 100 MG, 3X/DAY
     Route: 048
     Dates: start: 20160415
  10. PRINIVIL [Concomitant]
     Active Substance: LISINOPRIL
     Dosage: 40 MG, DAILY
     Route: 048
     Dates: start: 20160418
  11. VITAMIN B12 [Concomitant]
     Active Substance: CYANOCOBALAMIN
     Dosage: 2500 ?G, DAILY
     Route: 060
  12. FLEXERIL [Concomitant]
     Active Substance: CYCLOBENZAPRINE HYDROCHLORIDE
     Indication: MYALGIA
     Dosage: 10 MG TABLET, TAKE 1 OR 2 TABLETS BY MOUTH AT BEDTIME AS NEEDED
     Route: 048
     Dates: start: 20150415
  13. PRAVACHOL [Concomitant]
     Active Substance: PRAVASTATIN SODIUM
     Dosage: 40 MG, 1 TABLET BY MOUTH EVERY EVENING
     Route: 048
     Dates: start: 20151015
  14. WELLBUTRIN [Concomitant]
     Active Substance: BUPROPION HYDROCHLORIDE
     Dosage: 100 MG, 2X/DAY
     Route: 048
     Dates: start: 20150826
  15. PRINIVIL [Concomitant]
     Active Substance: LISINOPRIL
     Dosage: 20 MG, DAILY
     Route: 048
     Dates: start: 20150415
  16. ATIVAN [Concomitant]
     Active Substance: LORAZEPAM
     Dosage: 1 MG TABLET IN THE MORNING AND 2 TABLETS AT NIGHT
     Route: 048
  17. VITAMIN D2 [Concomitant]
     Active Substance: ERGOCALCIFEROL
     Dosage: 50000 IU, WEEKLY (ONCE A WEEK FOR 6 WEEKS, THEN TAKE ONE CAPSULE ONCE A MONTH)
     Route: 048
     Dates: start: 20160324
  18. SYNTHROID [Concomitant]
     Active Substance: LEVOTHYROXINE SODIUM
     Dosage: 150 UG, DAILY
     Route: 048
     Dates: start: 20151102
  19. GLUCOPHAGE XR [Concomitant]
     Active Substance: METFORMIN HYDROCHLORIDE
     Dosage: 500 MG, 2X/DAY(1 TABLET BY MOUTH 2 (TWO) TIMES DAILY WITH MEALS)
     Route: 048
     Dates: start: 20150306
  20. PRAVACHOL [Concomitant]
     Active Substance: PRAVASTATIN SODIUM
     Dosage: 40 MG, 1 TABLET BY MOUTH EVERY EVENING
     Route: 048
     Dates: start: 20150716
  21. ZESTRIL [Concomitant]
     Active Substance: LISINOPRIL
     Dosage: 1 DF, DAILY
     Route: 048
     Dates: start: 20160418
  22. LEVOTHROID [Concomitant]
     Active Substance: LEVOTHYROXINE SODIUM
     Dosage: 150 UG, DAILY
     Route: 048
     Dates: start: 20151102

REACTIONS (1)
  - Pain [Unknown]
